FAERS Safety Report 20873515 (Version 1)
Quarter: 2022Q2

REPORT INFORMATION
  Report Type: Spontaneous
  Country: US (occurrence: None)
  Receive Date: 20220525
  Receipt Date: 20220525
  Transmission Date: 20220721
  Serious: No
  Sender: FDA-Public Use
  Company Number: None

PATIENT
  Age: 69 Year
  Sex: Female
  Weight: 58.5 kg

DRUGS (17)
  1. PAXLOVID [Suspect]
     Active Substance: NIRMATRELVIR\RITONAVIR
     Indication: COVID-19
     Dates: start: 20220411, end: 20220416
  2. LEVOTHYROXINE [Concomitant]
     Active Substance: LEVOTHYROXINE
  3. DILTIAZEM [Concomitant]
     Active Substance: DILTIAZEM
  4. DULOXETINE [Concomitant]
     Active Substance: DULOXETINE
  5. QUETIAPINE [Concomitant]
     Active Substance: QUETIAPINE
  6. FAMOTIDINE [Concomitant]
     Active Substance: FAMOTIDINE
  7. SULFASALAZINE [Concomitant]
     Active Substance: SULFASALAZINE
  8. HYDROXYCHLOROQUINE [Concomitant]
     Active Substance: HYDROXYCHLOROQUINE
  9. mineral supplementation [Concomitant]
  10. multivitamin multimineral supplement [Concomitant]
  11. vitamin d 5000 [Concomitant]
  12. CALCIUM [Concomitant]
     Active Substance: CALCIUM
  13. MAGNESIUM [Concomitant]
     Active Substance: MAGNESIUM
  14. LYSINE [Concomitant]
     Active Substance: LYSINE
  15. DIETARY SUPPLEMENT\HERBALS [Concomitant]
     Active Substance: DIETARY SUPPLEMENT\HERBALS
  16. HERBALS [Concomitant]
     Active Substance: HERBALS
  17. MELATONIN [Concomitant]
     Active Substance: MELATONIN

REACTIONS (4)
  - Oropharyngeal pain [None]
  - Fatigue [None]
  - Cough [None]
  - SARS-CoV-2 test positive [None]

NARRATIVE: CASE EVENT DATE: 20220418
